FAERS Safety Report 7532346-2 (Version None)
Quarter: 2011Q2

REPORT INFORMATION
  Report Type: 
  Country: None (occurrence: None)
  Receive Date: 20110608
  Receipt Date: 20110601
  Transmission Date: 20111010
  Serious: Yes (Other)
  Sender: FDA-Public Use
  Company Number: US-ROXANE LABORATORIES, INC.-2011-RO-00758RO

PATIENT
  Age: 80 Year
  Sex: Female

DRUGS (5)
  1. LOPERAMIDE [Suspect]
     Indication: DIARRHOEA
  2. HYDROCHLOROTHIAZIDE [Suspect]
  3. SERTRALINE HYDROCHLORIDE [Suspect]
  4. CARBAMAZEPINE [Suspect]
  5. WARFARIN SODIUM [Suspect]

REACTIONS (1)
  - DIARRHOEA [None]
